FAERS Safety Report 7730025-X (Version None)
Quarter: 2011Q3

REPORT INFORMATION
  Report Type: 
  Country: None (occurrence: None)
  Receive Date: 20110831
  Receipt Date: 20110819
  Transmission Date: 20111222
  Serious: Yes (Hospitalization)
  Sender: FDA-Public Use
  Company Number: 1000023166

PATIENT
  Age: 82 Year
  Sex: Female

DRUGS (3)
  1. ARICEPT [Concomitant]
  2. RIZE (CLOTIAZEPAM) [Concomitant]
  3. MEMANTINE [Suspect]
     Indication: DEMENTIA ALZHEIMER'S TYPE
     Dosage: 5 MG (5 MG, 1 IN 1 D), ORAL
     Route: 048
     Dates: start: 20110804, end: 20110801

REACTIONS (1)
  - RESPIRATORY FAILURE [None]
